FAERS Safety Report 6273081-0 (Version None)
Quarter: 2009Q3

REPORT INFORMATION
  Report Type: 
  Country: None (occurrence: None)
  Receive Date: 20090715
  Receipt Date: 20090715
  Transmission Date: 20100115
  Serious: Yes (Other)
  Sender: FDA-Public Use
  Company Number: None

PATIENT
  Age: 38 Year
  Sex: Female
  Weight: 104.3273 kg

DRUGS (2)
  1. LEVETIRACETAM [Suspect]
     Dosage: 750MG BID PO (LATE JUNE 09)
     Route: 048
  2. OXCARBAZEPINE [Suspect]
     Dosage: 900MG BID PO (LATE JUNE 09)
     Route: 048

REACTIONS (6)
  - AURA [None]
  - CONVULSION [None]
  - DEJA VU [None]
  - DIZZINESS [None]
  - PRODUCT SUBSTITUTION ISSUE [None]
  - UNEVALUABLE EVENT [None]
